FAERS Safety Report 8964197 (Version 3)
Quarter: 2013Q1

REPORT INFORMATION
  Report Type: Spontaneous
  Country: US (occurrence: US)
  Receive Date: 20121213
  Receipt Date: 20130314
  Transmission Date: 20140127
  Serious: Yes (Hospitalization)
  Sender: FDA-Public Use
  Company Number: US-B.I. PHARMACEUTICALS,INC./RIDGEFIELD-2012-BI-02682BP

PATIENT
  Age: 86 Year
  Sex: Male
  Weight: 50 kg

DRUGS (14)
  1. PRADAXA [Suspect]
     Indication: ATRIAL FIBRILLATION
     Dosage: 150 MG
     Route: 048
     Dates: start: 20121115, end: 20121117
  2. FLOMAX CAPSULES [Suspect]
     Dosage: 0.4 MG
  3. ZANTAC (RANITIDINE HYDROCHLORIDE) [Suspect]
  4. ASPIRIN/ASA [Concomitant]
     Dosage: 325 MG
     Dates: start: 20121110, end: 20121116
  5. SYNTHROID [Concomitant]
     Dosage: 50 MCG
  6. CARDIZEM CD [Concomitant]
     Dosage: 125 MG
  7. ARICEPT [Concomitant]
  8. PLAVIX [Concomitant]
     Dosage: 75 MG
     Dates: start: 20121110, end: 20121116
  9. CELEBREX [Concomitant]
     Dosage: 200 MG
     Dates: start: 20121101, end: 20121116
  10. ZOFRAN [Concomitant]
     Route: 042
  11. MIRALAX [Concomitant]
     Dosage: 17 G
  12. PROTONIX [Concomitant]
     Dosage: 40 MG
  13. XARELTO [Concomitant]
     Indication: ATRIAL FIBRILLATION
     Dosage: 15 MG
     Dates: start: 20121122
  14. CIPRO [Concomitant]
     Indication: URINARY TRACT INFECTION

REACTIONS (4)
  - Upper gastrointestinal haemorrhage [Recovered/Resolved]
  - Upper gastrointestinal haemorrhage [Recovered/Resolved]
  - Rib fracture [Recovered/Resolved]
  - Fall [Recovered/Resolved]
